FAERS Safety Report 15930123 (Version 1)
Quarter: 2019Q1

REPORT INFORMATION
  Report Type: Report from Study
  Country: IL (occurrence: IL)
  Receive Date: 20190206
  Receipt Date: 20190206
  Transmission Date: 20190417
  Serious: Yes (Hospitalization)
  Sender: FDA-Public Use
  Company Number: IL-BRISTOL-MYERS SQUIBB COMPANY-BMS-2018-114337

PATIENT
  Age: 73 Year
  Sex: Male

DRUGS (12)
  1. PARACETAMOL [Concomitant]
     Active Substance: ACETAMINOPHEN
     Indication: MYALGIA
     Dosage: 300 MG, PRN
     Route: 048
     Dates: start: 2018
  2. CIRCADIN [Concomitant]
     Active Substance: MELATONIN
     Indication: INSOMNIA
     Dosage: 2 MG, QD
     Route: 048
     Dates: start: 2013
  3. EVITOL [Concomitant]
     Indication: ADVERSE EVENT
     Dosage: 200 MG, QD
     Route: 048
     Dates: start: 2013
  4. CALCIUM [Concomitant]
     Active Substance: CALCIUM
     Indication: SUPPLEMENTATION THERAPY
     Dosage: 600 MG, QD
     Route: 048
     Dates: start: 2013
  5. NIVOLUMAB [Suspect]
     Active Substance: NIVOLUMAB
     Indication: KAPOSI^S SARCOMA
     Dosage: 240 MG, UNK
     Route: 042
     Dates: start: 20181024
  6. OPTALGIN [Concomitant]
     Active Substance: METAMIZOLE
     Indication: PAIN
     Dosage: 500 MG, PRN
     Route: 048
     Dates: start: 1970
  7. VEXTOR [Concomitant]
     Indication: HYPERTENSION
     Dosage: 80 MG,
     Route: 048
     Dates: start: 2007
  8. ARTHRYL                            /00943602/ [Concomitant]
     Indication: OSTEOPENIA
     Dosage: 1500 MG, QD
     Route: 048
     Dates: start: 2015
  9. LIPITOR [Concomitant]
     Active Substance: ATORVASTATIN CALCIUM
     Indication: HYPERCHOLESTEROLAEMIA
     Dosage: 10 MG, QD
     Route: 048
     Dates: start: 1990
  10. VITAMIN D                          /00107901/ [Concomitant]
     Active Substance: ERGOCALCIFEROL
     Indication: SUPPLEMENTATION THERAPY
     Dosage: 0.05 MG, QD
     Route: 048
     Dates: start: 2013
  11. IPILIMUMAB [Suspect]
     Active Substance: IPILIMUMAB
     Indication: KAPOSI^S SARCOMA
     Dosage: 1 MG/KG, UNK
     Route: 042
     Dates: start: 20181024
  12. OMNIC [Concomitant]
     Active Substance: TAMSULOSIN HYDROCHLORIDE
     Indication: PRODUCT USED FOR UNKNOWN INDICATION
     Dosage: 0.4 MG, QD
     Route: 048
     Dates: start: 1990

REACTIONS (2)
  - Muscular weakness [Unknown]
  - Speech disorder [Unknown]

NARRATIVE: CASE EVENT DATE: 20181202
